FAERS Safety Report 21303914 (Version 1)
Quarter: 2022Q3

REPORT INFORMATION
  Report Type: Spontaneous
  Country: US (occurrence: None)
  Receive Date: 20220907
  Receipt Date: 20220907
  Transmission Date: 20221027
  Serious: No
  Sender: FDA-Public Use
  Company Number: US-FARMAPROD-202007-1017

PATIENT
  Age: 77 Year
  Sex: Female

DRUGS (18)
  1. OXERVATE [Suspect]
     Active Substance: CENEGERMIN-BKBJ
     Indication: Ophthalmic herpes zoster
     Route: 047
     Dates: start: 20200721, end: 20200914
  2. OXERVATE [Suspect]
     Active Substance: CENEGERMIN-BKBJ
     Indication: Neurotrophic keratopathy
     Route: 047
     Dates: start: 20220124
  3. OXERVATE [Suspect]
     Active Substance: CENEGERMIN-BKBJ
     Indication: Hypoaesthesia eye
  4. VITAMIN D-400 [Concomitant]
  5. VITAMIN C [Concomitant]
     Active Substance: ASCORBIC ACID
  6. POTASSIUM 600 [Concomitant]
     Dosage: (99) MG
  7. NYSTATIN [Concomitant]
     Active Substance: NYSTATIN
     Dosage: 100000/G
  8. GABAPENTIN [Concomitant]
     Active Substance: GABAPENTIN
  9. LASIX [Concomitant]
     Active Substance: FUROSEMIDE
  10. FLUCONAZOLE [Concomitant]
     Active Substance: FLUCONAZOLE
  11. CARVEDILOL [Concomitant]
     Active Substance: CARVEDILOL
  12. ALPRAZOLAM [Concomitant]
     Active Substance: ALPRAZOLAM
  13. FISH OIL [Concomitant]
     Active Substance: FISH OIL
     Dosage: 100-150 MG
  14. MONTELUKAST SODIUM [Concomitant]
     Active Substance: MONTELUKAST SODIUM
  15. ROSUVASTATIN CALCIUM [Concomitant]
     Active Substance: ROSUVASTATIN CALCIUM
  16. LOSARTAN POTASSIUM [Concomitant]
     Active Substance: LOSARTAN POTASSIUM
  17. ELIQUIS [Concomitant]
     Active Substance: APIXABAN
  18. POLYVINYL ALCOHOL\POVIDONE [Concomitant]
     Active Substance: POLYVINYL ALCOHOL\POVIDONE
     Dosage: 0.1%-0.3%

REACTIONS (5)
  - Ocular discomfort [Unknown]
  - Eyelid pain [Unknown]
  - Eye pain [Unknown]
  - Lacrimation increased [Unknown]
  - Eye irritation [Unknown]

NARRATIVE: CASE EVENT DATE: 20200701
